FAERS Safety Report 11235841 (Version 1)
Quarter: 2015Q3

REPORT INFORMATION
  Report Type: Report from Study
  Country: FR (occurrence: FR)
  Receive Date: 20150702
  Receipt Date: 20150702
  Transmission Date: 20151125
  Serious: Yes (Hospitalization, Other)
  Sender: FDA-Public Use
  Company Number: FR-GLAXOSMITHKLINE-FR2015GSK094735

PATIENT
  Age: 59 Year
  Sex: Male

DRUGS (8)
  1. INSPRA [Concomitant]
     Active Substance: EPLERENONE
  2. TAHOR [Concomitant]
     Active Substance: ATORVASTATIN CALCIUM
  3. PLAVIX [Concomitant]
     Active Substance: CLOPIDOGREL BISULFATE
  4. COVERSYL [Concomitant]
     Active Substance: PERINDOPRIL
  5. KARDEGIC [Concomitant]
     Active Substance: ASPIRIN LYSINE
  6. OMEGA-3-ACID ETHYL ESTERS. [Suspect]
     Active Substance: OMEGA-3-ACID ETHYL ESTERS
     Indication: ISCHAEMIC HEART DISEASE PROPHYLAXIS
     Dosage: UNK
     Dates: start: 20080424
  7. CARDENSIEL [Concomitant]
     Active Substance: BISOPROLOL FUMARATE
  8. NICOPATCH [Concomitant]
     Active Substance: NICOTINE

REACTIONS (2)
  - Acute pulmonary oedema [Unknown]
  - Malaise [Unknown]

NARRATIVE: CASE EVENT DATE: 20090329
